FAERS Safety Report 12339956 (Version 1)
Quarter: 2016Q2

REPORT INFORMATION
  Report Type: Spontaneous
  Country: JP (occurrence: JP)
  Receive Date: 20160506
  Receipt Date: 20160506
  Transmission Date: 20160815
  Serious: Yes (Hospitalization, Other)
  Sender: FDA-Public Use
  Company Number: JP-AMGEN-JPNSP2016055802

PATIENT
  Age: 60 Year
  Sex: Female
  Weight: 57.96 kg

DRUGS (1)
  1. ENBREL [Suspect]
     Active Substance: ETANERCEPT
     Indication: PRODUCT USED FOR UNKNOWN INDICATION
     Dosage: 50 MG, UNK
     Route: 058

REACTIONS (3)
  - Hypoacusis [Unknown]
  - Pulmonary sarcoidosis [Unknown]
  - Neurosarcoidosis [Unknown]

NARRATIVE: CASE EVENT DATE: 20160204
